FAERS Safety Report 5021677-6 (Version None)
Quarter: 2006Q2

REPORT INFORMATION
  Report Type: 
  Country: None (occurrence: None)
  Receive Date: 20060605
  Receipt Date: 20060519
  Transmission Date: 20061013
  Serious: Yes (Other)
  Sender: FDA-Public Use
  Company Number: US200605004436

PATIENT
  Age: 60 Year
  Sex: Female

DRUGS (4)
  1. ALIMTA [Suspect]
     Indication: PLEURAL MESOTHELIOMA MALIGNANT
     Dates: start: 20060501
  2. CISPLATIN [Concomitant]
  3. CYANOCOBALAMIN [Concomitant]
  4. FOLIC ACID [Concomitant]

REACTIONS (1)
  - RENAL INFARCT [None]
